FAERS Safety Report 6699280-1 (Version None)
Quarter: 2010Q2

REPORT INFORMATION
  Report Type: 
  Country: None (occurrence: None)
  Receive Date: 20100427
  Receipt Date: 20100418
  Transmission Date: 20101027
  Serious: Yes (Other)
  Sender: FDA-Public Use
  Company Number: PHHY2010MX24447

PATIENT
  Age: 81 Year
  Sex: Female

DRUGS (1)
  1. ZOMETA [Suspect]
     Dosage: 4 MG, QMO
     Dates: start: 20091001, end: 20091001

REACTIONS (5)
  - ALOPECIA [None]
  - DENTAL CARIES [None]
  - OSTEONECROSIS [None]
  - RENAL PAIN [None]
  - THROMBOSIS [None]
